FAERS Safety Report 24728058 (Version 1)
Quarter: 2024Q4

REPORT INFORMATION
  Report Type: Spontaneous
  Country: CA (occurrence: CA)
  Receive Date: 20241212
  Receipt Date: 20241212
  Transmission Date: 20250114
  Serious: Yes (Other)
  Sender: TEVA
  Company Number: CA-TEVA-VS-3273835

PATIENT
  Age: 35 Year
  Sex: Female

DRUGS (30)
  1. ZOPICLONE [Suspect]
     Active Substance: ZOPICLONE
     Indication: Poor quality sleep
     Route: 064
  2. ZOPICLONE [Suspect]
     Active Substance: ZOPICLONE
     Indication: Poor quality sleep
     Route: 064
  3. LORAZEPAM [Concomitant]
     Active Substance: LORAZEPAM
     Indication: Product used for unknown indication
     Dosage: DOSAGE FORM:NOT SPECIFIED
     Route: 050
  4. BENZTROPINE MESYLATE [Interacting]
     Active Substance: BENZTROPINE MESYLATE
     Indication: Dystonia
     Route: 065
  5. BENZTROPINE MESYLATE [Interacting]
     Active Substance: BENZTROPINE MESYLATE
     Indication: Dystonia
     Route: 065
  6. LEVOMEPROMAZINE MALEATE [Interacting]
     Active Substance: LEVOMEPROMAZINE MALEATE
     Indication: Poor quality sleep
     Route: 065
  7. LEVOMEPROMAZINE MALEATE [Interacting]
     Active Substance: LEVOMEPROMAZINE MALEATE
     Indication: Poor quality sleep
     Route: 065
  8. LEVOMEPROMAZINE MALEATE [Interacting]
     Active Substance: LEVOMEPROMAZINE MALEATE
     Indication: Poor quality sleep
     Route: 065
  9. LEVOMEPROMAZINE MALEATE [Interacting]
     Active Substance: LEVOMEPROMAZINE MALEATE
     Indication: Poor quality sleep
     Route: 065
  10. TEMAZEPAM [Interacting]
     Active Substance: TEMAZEPAM
     Indication: Poor quality sleep
     Route: 065
  11. TEMAZEPAM [Interacting]
     Active Substance: TEMAZEPAM
     Indication: Poor quality sleep
     Route: 065
  12. TEMAZEPAM [Interacting]
     Active Substance: TEMAZEPAM
     Indication: Poor quality sleep
     Route: 065
  13. TEMAZEPAM [Interacting]
     Active Substance: TEMAZEPAM
     Indication: Poor quality sleep
     Route: 065
  14. CHLORDIAZEPOXIDE [Interacting]
     Active Substance: CHLORDIAZEPOXIDE
     Indication: Poor quality sleep
     Route: 065
  15. LITHIUM CARBONATE [Interacting]
     Active Substance: LITHIUM CARBONATE
     Indication: Affective disorder
     Route: 048
  16. LITHIUM CARBONATE [Interacting]
     Active Substance: LITHIUM CARBONATE
     Indication: Affective disorder
     Dosage: DOSAGE FORM:NOT SPECIFIED
     Route: 048
  17. OXAZEPAM [Interacting]
     Active Substance: OXAZEPAM
     Indication: Poor quality sleep
     Route: 065
  18. OXAZEPAM [Interacting]
     Active Substance: OXAZEPAM
     Indication: Poor quality sleep
     Route: 065
  19. VORTIOXETINE [Concomitant]
     Active Substance: VORTIOXETINE
     Indication: Antidepressant therapy
     Route: 048
  20. QUETIAPINE FUMARATE [Suspect]
     Active Substance: QUETIAPINE FUMARATE
     Indication: Bipolar I disorder
     Route: 048
  21. QUETIAPINE FUMARATE [Suspect]
     Active Substance: QUETIAPINE FUMARATE
     Indication: Bipolar I disorder
     Route: 048
  22. SERTRALINE [Concomitant]
     Active Substance: SERTRALINE HYDROCHLORIDE
     Indication: Bipolar I disorder
     Route: 065
  23. SERTRALINE [Concomitant]
     Active Substance: SERTRALINE HYDROCHLORIDE
     Indication: Bipolar I disorder
     Route: 065
  24. ARIPIPRAZOLE [Interacting]
     Active Substance: ARIPIPRAZOLE
     Indication: Psychotic disorder
     Route: 030
  25. ARIPIPRAZOLE [Interacting]
     Active Substance: ARIPIPRAZOLE
     Indication: Psychotic disorder
     Dosage: DOSAGE FORM:NOT SPECIFIED
     Route: 048
  26. ARIPIPRAZOLE [Interacting]
     Active Substance: ARIPIPRAZOLE
     Indication: Psychotic disorder
     Route: 030
  27. CLONAZEPAM [Interacting]
     Active Substance: CLONAZEPAM
     Indication: Dystonia
     Route: 065
  28. CLONAZEPAM [Interacting]
     Active Substance: CLONAZEPAM
     Indication: Dystonia
     Route: 065
  29. CLONAZEPAM [Interacting]
     Active Substance: CLONAZEPAM
     Indication: Dystonia
     Route: 065
  30. CLONAZEPAM [Interacting]
     Active Substance: CLONAZEPAM
     Indication: Dystonia
     Route: 065

REACTIONS (9)
  - Dystonic tremor [Unknown]
  - Foetal exposure during pregnancy [Unknown]
  - Drug ineffective [Unknown]
  - Dystonia [Unknown]
  - Off label use [Unknown]
  - Product use in unapproved indication [Unknown]
  - Therapeutic product effect incomplete [Unknown]
  - Restlessness [Unknown]
  - Drug interaction [Unknown]
